FAERS Safety Report 10081232 (Version 3)
Quarter: 2019Q2

REPORT INFORMATION
  Report Type: Spontaneous
  Country: US (occurrence: US)
  Receive Date: 20140416
  Receipt Date: 20190614
  Transmission Date: 20190711
  Serious: Yes (Other)
  Sender: FDA-Public Use
  Company Number: US-PFIZER INC-2014103858

PATIENT
  Age: 65 Year
  Sex: Female
  Weight: 83 kg

DRUGS (2)
  1. NORVASC [Suspect]
     Active Substance: AMLODIPINE BESYLATE
     Dosage: 5 MG, 2X/DAY
  2. NORVASC [Suspect]
     Active Substance: AMLODIPINE BESYLATE
     Indication: HYPERTENSION
     Dosage: 10 MG, DAILY

REACTIONS (7)
  - Product use issue [Unknown]
  - Off label use [Unknown]
  - Pruritus [Unknown]
  - Heart rate decreased [Not Recovered/Not Resolved]
  - Insomnia [Recovering/Resolving]
  - Alopecia [Unknown]
  - Blood pressure inadequately controlled [Recovering/Resolving]

NARRATIVE: CASE EVENT DATE: 201401
